FAERS Safety Report 10012506 (Version 1)
Quarter: 2014Q1

REPORT INFORMATION
  Report Type: Spontaneous
  Country: US (occurrence: US)
  Receive Date: 20140314
  Receipt Date: 20140314
  Transmission Date: 20141002
  Serious: Yes (Other)
  Sender: FDA-Public Use
  Company Number: US-009507513-1403USA006484

PATIENT
  Sex: Female

DRUGS (1)
  1. JANUMET [Suspect]
     Dosage: UNK
     Route: 048
     Dates: start: 200808, end: 2013

REACTIONS (1)
  - Pancreatic carcinoma [Unknown]
